FAERS Safety Report 7379653-4 (Version None)
Quarter: 2011Q1

REPORT INFORMATION
  Report Type: 
  Country: None (occurrence: None)
  Receive Date: 20110329
  Receipt Date: 20110324
  Transmission Date: 20110831
  Serious: No
  Sender: FDA-Public Use
  Company Number: US-PFIZER INC-2011066430

PATIENT
  Sex: Female

DRUGS (2)
  1. ANASTROZOLE [Interacting]
     Dosage: UNK
     Route: 048
  2. EFFEXOR [Suspect]
     Dosage: UNK
     Route: 048

REACTIONS (2)
  - BONE DENSITY DECREASED [None]
  - DRUG INTERACTION [None]
